FAERS Safety Report 8300041-8 (Version None)
Quarter: 2012Q2

REPORT INFORMATION
  Report Type: 
  Country: None (occurrence: None)
  Receive Date: 20120420
  Receipt Date: 20120418
  Transmission Date: 20120825
  Serious: No
  Sender: FDA-Public Use
  Company Number: US-PFIZER INC-2012096826

PATIENT
  Sex: Female

DRUGS (3)
  1. PEDIATRIC ADVIL [Suspect]
     Indication: PYREXIA
  2. AMOXICILLIN [Concomitant]
     Indication: EAR INFECTION
     Dosage: UNK
  3. PEDIATRIC ADVIL [Suspect]
     Indication: PAIN
     Dosage: UNK, 2X/DAY
     Route: 048

REACTIONS (1)
  - TREMOR [None]
